FAERS Safety Report 14350928 (Version 1)
Quarter: 2018Q1

REPORT INFORMATION
  Report Type: Spontaneous
  Country: US (occurrence: US)
  Receive Date: 20180103
  Receipt Date: 20180103
  Transmission Date: 20180509
  Serious: No
  Sender: FDA-Public Use
  Company Number: None

PATIENT
  Age: 65 Year
  Sex: Female

DRUGS (1)
  1. GAMUNEX [Suspect]
     Active Substance: HUMAN IMMUNOGLOBULIN G
     Indication: ILL-DEFINED DISORDER
     Route: 058

REACTIONS (4)
  - Burning sensation [None]
  - Incorrect drug administration rate [None]
  - Pain [None]
  - Swelling [None]

NARRATIVE: CASE EVENT DATE: 20171229
